FAERS Safety Report 15749222 (Version 1)
Quarter: 2018Q4

REPORT INFORMATION
  Report Type: Spontaneous
  Country: US (occurrence: US)
  Receive Date: 20181220
  Receipt Date: 20181220
  Transmission Date: 20190205
  Serious: Yes (Hospitalization)
  Sender: FDA-Public Use
  Company Number: None

PATIENT
  Age: 58 Year
  Sex: Female

DRUGS (10)
  1. DETROL LA [Concomitant]
     Active Substance: TOLTERODINE TARTRATE
  2. CLOBESTASOL [Concomitant]
  3. LEFLUNOMIDE. [Concomitant]
     Active Substance: LEFLUNOMIDE
  4. CYMBALTA [Concomitant]
     Active Substance: DULOXETINE HYDROCHLORIDE
  5. LIPITOR [Concomitant]
     Active Substance: ATORVASTATIN CALCIUM
  6. DUEXIS [Concomitant]
     Active Substance: FAMOTIDINE\IBUPROFEN
  7. HUMIRA [Suspect]
     Active Substance: ADALIMUMAB
     Indication: RHEUMATOID ARTHRITIS
     Dosage: ?          OTHER FREQUENCY:QOW;?
     Route: 058
     Dates: start: 20170525
  8. VITAMIN D3 [Concomitant]
     Active Substance: CHOLECALCIFEROL
  9. NOVOLOG [Concomitant]
     Active Substance: INSULIN ASPART
  10. VITAMIN B12 [Concomitant]
     Active Substance: CYANOCOBALAMIN

REACTIONS (1)
  - Spinal operation [None]

NARRATIVE: CASE EVENT DATE: 20181023
